FAERS Safety Report 9289625 (Version 1)
Quarter: 2013Q2

REPORT INFORMATION
  Report Type: Report from Study
  Country: US (occurrence: US)
  Receive Date: 20130515
  Receipt Date: 20130515
  Transmission Date: 20140414
  Serious: Yes (Hospitalization)
  Sender: FDA-Public Use
  Company Number: US-ROCHE-1224570

PATIENT
  Age: 54 Year
  Sex: Female

DRUGS (2)
  1. XELODA [Suspect]
     Indication: COLON CANCER
     Route: 048
     Dates: start: 20130501, end: 20130510
  2. XELODA [Suspect]
     Route: 048
     Dates: start: 20130514

REACTIONS (3)
  - Diarrhoea [Recovered/Resolved]
  - Anorectal discomfort [Unknown]
  - Abdominal pain [Unknown]
